FAERS Safety Report 12902908 (Version 1)
Quarter: 2016Q4

REPORT INFORMATION
  Report Type: Spontaneous
  Country: US (occurrence: US)
  Receive Date: 20161102
  Receipt Date: 20161102
  Transmission Date: 20170207
  Serious: No
  Sender: FDA-Public Use
  Company Number: US-JNJFOC-20160820745

PATIENT
  Age: 62 Year
  Sex: Female
  Weight: 55.34 kg

DRUGS (2)
  1. IMODIUM MULTI-SYMPTOM RELIEF [Suspect]
     Active Substance: DIMETHICONE\LOPERAMIDE HYDROCHLORIDE
     Indication: DIARRHOEA
     Route: 048
     Dates: start: 20160809, end: 20160809
  2. IMODIUM MULTI-SYMPTOM RELIEF [Suspect]
     Active Substance: DIMETHICONE\LOPERAMIDE HYDROCHLORIDE
     Indication: ABDOMINAL DISCOMFORT
     Route: 048
     Dates: start: 20160809, end: 20160809

REACTIONS (2)
  - Faeces discoloured [Recovered/Resolved]
  - Product packaging issue [Unknown]

NARRATIVE: CASE EVENT DATE: 20160809
